FAERS Safety Report 5014783-3 (Version None)
Quarter: 2006Q2

REPORT INFORMATION
  Report Type: 
  Country: None (occurrence: None)
  Receive Date: 20060424
  Receipt Date: 20050708
  Transmission Date: 20061013
  Serious: Yes (Other)
  Sender: FDA-Public Use
  Company Number: WAES 0406USA00228

PATIENT
  Age: 13 Year
  Sex: Male
  Weight: 41.7309 kg

DRUGS (5)
  1. SINGULAIR [Suspect]
     Indication: ASTHMA
     Dosage: 10 MG/DAILY/PO
     Route: 048
     Dates: start: 20020601, end: 20040420
  2. PULMICORT [Concomitant]
  3. RHINOCORT [Concomitant]
  4. ZOLOFT [Concomitant]
  5. ZYRTEC [Concomitant]

REACTIONS (3)
  - ALANINE AMINOTRANSFERASE INCREASED [None]
  - ASPARTATE AMINOTRANSFERASE INCREASED [None]
  - PRESCRIBED OVERDOSE [None]
